FAERS Safety Report 17437939 (Version 2)
Quarter: 2020Q1

REPORT INFORMATION
  Report Type: Spontaneous
  Country: PT (occurrence: PT)
  Receive Date: 20200219
  Receipt Date: 20200312
  Transmission Date: 20200409
  Serious: Yes (Other)
  Sender: FDA-Public Use
  Company Number: PT-AUROBINDO-AUR-APL-2020-008393

PATIENT
  Age: 63 Year
  Sex: Female
  Weight: 55 kg

DRUGS (7)
  1. ENOXAPARIN SODIUM. [Concomitant]
     Active Substance: ENOXAPARIN SODIUM
     Indication: PRODUCT USED FOR UNKNOWN INDICATION
     Dosage: UNK
     Route: 065
  2. AMLODIPINE [Suspect]
     Active Substance: AMLODIPINE BESYLATE
     Indication: HYPERTENSION
     Dosage: 5 MILLIGRAM, ONCE A DAY,1X/DIA
     Route: 048
     Dates: start: 20200125, end: 20200128
  3. PARACETAMOL B BRAUN [Suspect]
     Active Substance: ACETAMINOPHEN
     Indication: ANALGESIC THERAPY
     Dosage: 3000 MILLIGRAM, ONCE A DAY,1G 8/8H
     Route: 042
     Dates: start: 20200124
  4. VALSARTAN. [Concomitant]
     Active Substance: VALSARTAN
     Indication: PRODUCT USED FOR UNKNOWN INDICATION
     Dosage: UNK
     Route: 048
  5. LACTULOSE. [Concomitant]
     Active Substance: LACTULOSE
     Indication: PRODUCT USED FOR UNKNOWN INDICATION
     Dosage: UNK
     Route: 048
  6. ESOMEPRAZOLE GENERIS GASTRO RESISTANT CAPSULES [Suspect]
     Active Substance: ESOMEPRAZOLE
     Indication: PROPHYLAXIS AGAINST GASTROINTESTINAL ULCER
     Dosage: 20 MILLIGRAM, ONCE A DAY,1X/DIA
     Route: 048
     Dates: start: 20200123, end: 20200129
  7. NOLOTIL [METAMIZOLE MAGNESIUM] [Suspect]
     Active Substance: METAMIZOLE MAGNESIUM
     Indication: ANALGESIC THERAPY
     Dosage: 4000 MILLIGRAM, ONCE A DAY,2G 12/12H
     Route: 042
     Dates: start: 20200125, end: 20200128

REACTIONS (2)
  - Rash [Recovering/Resolving]
  - Eosinophilia [Recovering/Resolving]

NARRATIVE: CASE EVENT DATE: 20200127
